FAERS Safety Report 15633779 (Version 1)
Quarter: 2018Q4

REPORT INFORMATION
  Report Type: Spontaneous
  Country: US (occurrence: US)
  Receive Date: 20181119
  Receipt Date: 20181119
  Transmission Date: 20190205
  Serious: No
  Sender: FDA-Public Use
  Company Number: None

PATIENT
  Age: 73 Year
  Sex: Male
  Weight: 65.25 kg

DRUGS (5)
  1. SINUS RINSE [Concomitant]
     Active Substance: SODIUM BICARBONATE\SODIUM CHLORIDE
  2. SINVASTATIN [Concomitant]
     Active Substance: SIMVASTATIN
  3. GENERIC IMITREX [Concomitant]
  4. FLONASE [Concomitant]
     Active Substance: FLUTICASONE PROPIONATE
  5. LISINOPRIL 10MG [Suspect]
     Active Substance: LISINOPRIL
     Indication: HYPERTENSION
     Dosage: ?          QUANTITY:1 TABLET(S);?
     Route: 048
     Dates: start: 20181113, end: 20181119

REACTIONS (4)
  - Hypersensitivity [None]
  - Diarrhoea [None]
  - Rash [None]
  - Headache [None]

NARRATIVE: CASE EVENT DATE: 20181118
